FAERS Safety Report 5486459-X (Version None)
Quarter: 2007Q4

REPORT INFORMATION
  Report Type: 
  Country: None (occurrence: None)
  Receive Date: 20071016
  Receipt Date: 20071012
  Transmission Date: 20080405
  Serious: Yes (Hospitalization)
  Sender: FDA-Public Use
  Company Number: A0687737A

PATIENT
  Age: 67 Year
  Sex: Female
  Weight: 35.9 kg

DRUGS (4)
  1. REQUIP [Suspect]
     Indication: PARKINSON'S DISEASE
     Route: 048
     Dates: start: 20020101
  2. ACTONEL [Concomitant]
  3. THYROID TAB [Concomitant]
  4. PAIN MEDICATION [Concomitant]

REACTIONS (5)
  - BALANCE DISORDER [None]
  - CONTUSION [None]
  - DIZZINESS [None]
  - FALL [None]
  - RIB FRACTURE [None]
